FAERS Safety Report 9205056 (Version 2)
Quarter: 2013Q3

REPORT INFORMATION
  Report Type: Spontaneous
  Country: US (occurrence: US)
  Receive Date: 20130402
  Receipt Date: 20130919
  Transmission Date: 20140515
  Serious: Yes (Hospitalization)
  Sender: FDA-Public Use
  Company Number: US-B.I. PHARMACEUTICALS,INC./RIDGEFIELD-2013-BI-08748BP

PATIENT
  Age: 72 Year
  Sex: Male
  Weight: 82.6 kg

DRUGS (18)
  1. PRADAXA [Suspect]
     Indication: ATRIAL FIBRILLATION
     Dosage: 300 MG
     Route: 048
     Dates: start: 20110620, end: 20120403
  2. VICODIN [Concomitant]
     Route: 048
  3. CARBITOL [Concomitant]
  4. DIGOXIN [Concomitant]
     Dosage: 62.5 MG
     Route: 048
  5. FLOMAX [Concomitant]
     Dosage: 0.8 MG
     Route: 048
  6. CARDURA [Concomitant]
     Dosage: 4 MG
     Route: 048
  7. NEXIUM [Concomitant]
     Dosage: 40 MG
     Route: 048
  8. CRESTOR [Concomitant]
     Dosage: 10 MG
     Route: 048
  9. DIOVAN [Concomitant]
     Dosage: 160 MG
     Route: 048
  10. COREG [Concomitant]
     Dosage: 50 MG
     Route: 048
  11. ALDACTONE [Concomitant]
  12. MULTIVITAMIN [Concomitant]
  13. AMOXICILLIN [Concomitant]
     Dosage: 2625 MG
     Route: 048
  14. ONDANSETRON [Concomitant]
     Dosage: 16 MG
     Route: 048
  15. ALLOPURINOL [Concomitant]
     Dosage: 300 MG
  16. MOBIC [Concomitant]
     Dosage: 7.5 MG
  17. CARDIZEM [Concomitant]
     Dosage: 240 MG
  18. LASIX [Concomitant]

REACTIONS (6)
  - Cerebral haemorrhage [Unknown]
  - Intraventricular haemorrhage [Unknown]
  - Coagulopathy [Unknown]
  - Haemorrhage [Unknown]
  - Haematochezia [Unknown]
  - Anaemia [Unknown]
